FAERS Safety Report 8919184 (Version 2)
Quarter: 2012Q4

REPORT INFORMATION
  Report Type: 
  Country: US (occurrence: US)
  Receive Date: 20121121
  Receipt Date: 20121220
  Transmission Date: 20130627
  Serious: Yes (Hospitalization)
  Sender: FDA-Public Use
  Company Number: US-GENZYME-CERZ-1002706

PATIENT
  Age: 5 Year
  Sex: Male
  Weight: 17.8 kg

DRUGS (4)
  1. CEREZYME [Suspect]
     Indication: GAUCHER^S DISEASE
     Dosage: 60 U/kg, q2w
     Route: 042
     Dates: start: 20111006
  2. VANCOMYCIN [Suspect]
     Indication: RED MAN SYNDROME
     Route: 065
  3. ZYRTEC [Concomitant]
     Indication: PREMEDICATION
     Route: 065
  4. MULTIVITAMIN [Concomitant]
     Indication: PRODUCT USED FOR UNKNOWN INDICATION
     Route: 065

REACTIONS (6)
  - Pain in extremity [Recovered/Resolved]
  - Viral infection [Recovered/Resolved]
  - Splenomegaly [Recovered/Resolved]
  - Hepatomegaly [Recovered/Resolved]
  - Red man syndrome [Unknown]
  - Pruritus [Unknown]
